FAERS Safety Report 6179846-8 (Version None)
Quarter: 2009Q2

REPORT INFORMATION
  Report Type: 
  Country: None (occurrence: None)
  Receive Date: 20090505
  Receipt Date: 20090425
  Transmission Date: 20091009
  Serious: Yes (Hospitalization)
  Sender: FDA-Public Use
  Company Number: US-JNJFOC-20090406432

PATIENT
  Sex: Female

DRUGS (2)
  1. EXTRA STRENGTH TYLENOL [Suspect]
     Route: 048
  2. EXTRA STRENGTH TYLENOL [Suspect]
     Indication: INSOMNIA
     Route: 048

REACTIONS (5)
  - CONFUSIONAL STATE [None]
  - FATIGUE [None]
  - FEELING ABNORMAL [None]
  - HYPERSENSITIVITY [None]
  - MEMORY IMPAIRMENT [None]
